FAERS Safety Report 6350470-7 (Version None)
Quarter: 2009Q3

REPORT INFORMATION
  Report Type: 
  Country: None (occurrence: None)
  Receive Date: 20090911
  Receipt Date: 20090622
  Transmission Date: 20100115
  Serious: No
  Sender: FDA-Public Use
  Company Number: US-ABBOTT-07P-163-0362327-00

PATIENT
  Sex: Male
  Weight: 75.818 kg

DRUGS (5)
  1. HUMIRA [Suspect]
     Indication: RHEUMATOID ARTHRITIS
     Route: 058
     Dates: start: 20040101, end: 20070101
  2. HUMIRA [Suspect]
     Route: 058
     Dates: start: 20070101
  3. PREDNISONE [Concomitant]
     Indication: RHEUMATOID ARTHRITIS
     Route: 048
     Dates: start: 19980101
  4. METHOTREXATE [Concomitant]
     Indication: RHEUMATOID ARTHRITIS
     Route: 048
     Dates: start: 19980101
  5. ATENOLOL [Concomitant]
     Indication: MIGRAINE PROPHYLAXIS
     Route: 048
     Dates: start: 19950101

REACTIONS (4)
  - INCORRECT DOSE ADMINISTERED [None]
  - INJECTION SITE ERYTHEMA [None]
  - INJECTION SITE MASS [None]
  - INJECTION SITE PAIN [None]
